FAERS Safety Report 7136550 (Version 4)
Quarter: 2018Q4

REPORT INFORMATION
  Report Type: Spontaneous
  Country: JP (occurrence: JP)
  Receive Date: 20091001
  Receipt Date: 20181030
  Transmission Date: 20190205
  Serious: Yes (Death, Life-Threatening, Hospitalization)
  Sender: FDA-Public Use
  Company Number: PHHY2009JP15628

PATIENT
  Age: 73 Year
  Sex: Male
  Weight: 64 kg

DRUGS (1)
  1. GLIVEC [Suspect]
     Active Substance: IMATINIB MESYLATE
     Indication: GASTROINTESTINAL STROMAL TUMOUR
     Route: 048
     Dates: start: 20090205, end: 20090317

REACTIONS (5)
  - Interstitial lung disease [Fatal]
  - Dyspnoea [Fatal]
  - Dependence on respirator [Fatal]
  - Pneumonia bacterial [Fatal]
  - Sepsis [Fatal]

NARRATIVE: CASE EVENT DATE: 20090315
